FAERS Safety Report 7177147-2 (Version None)
Quarter: 2010Q4

REPORT INFORMATION
  Report Type: 
  Country: None (occurrence: None)
  Receive Date: 20101220
  Receipt Date: 20101208
  Transmission Date: 20110411
  Serious: Yes (Death, Other)
  Sender: FDA-Public Use
  Company Number: JP-PFIZER INC-2009287712

PATIENT
  Age: 39 Year
  Sex: Male
  Weight: 55 kg

DRUGS (13)
  1. CAMPTOSAR [Suspect]
     Indication: RECTAL CANCER
     Dosage: 82.3 MG/M2, (130 MG/BODY)
     Route: 041
     Dates: start: 20090918, end: 20090918
  2. FLUOROURACIL [Suspect]
     Indication: RECTAL CANCER
     Dosage: 405.1 MG/M2, (640MG/BODY)
     Route: 040
     Dates: start: 20090918, end: 20090918
  3. FLUOROURACIL [Suspect]
     Dosage: 2405.1 MG/M2, (3800 MG/BODY) D1-2
     Route: 041
     Dates: start: 20090918, end: 20090918
  4. CALCIUM LEVOFOLINATE [Concomitant]
     Indication: RECTAL CANCER
     Dosage: 320 MG, UNK
     Route: 041
     Dates: start: 20090918, end: 20090918
  5. DECADRON [Concomitant]
     Indication: PREMEDICATION
     Dosage: 8MG-4 MG, UNK
     Route: 041
     Dates: start: 20090918, end: 20090923
  6. DECADRON [Concomitant]
     Indication: DISSEMINATED INTRAVASCULAR COAGULATION
  7. ZOFRAN [Concomitant]
     Indication: PREMEDICATION
     Dosage: UNK
     Route: 041
     Dates: start: 20090918, end: 20090918
  8. PRIMPERAN TAB [Concomitant]
     Indication: PROPHYLAXIS OF NAUSEA AND VOMITING
     Dosage: 10MG-10MG, 5 TIMES/DAY, 10 MG SID
     Route: 042
     Dates: start: 20090919, end: 20090920
  9. FOY [Concomitant]
     Indication: DISSEMINATED INTRAVASCULAR COAGULATION
     Dosage: 2000 MG, UNK
     Route: 041
     Dates: start: 20090921, end: 20090923
  10. SOLU-MEDROL [Concomitant]
     Indication: DISSEMINATED INTRAVASCULAR COAGULATION
     Dosage: 1000 MG, UNK
     Route: 041
     Dates: start: 20090921, end: 20090922
  11. CATABON [Concomitant]
     Indication: SHOCK
     Dosage: UNK
     Route: 041
     Dates: start: 20090921, end: 20090923
  12. DOBUTREX [Concomitant]
     Indication: SHOCK
     Dosage: 5 ML, UNK
     Route: 041
     Dates: start: 20090921, end: 20090923
  13. CONCLYTE-NA [Concomitant]
     Indication: HYPONATRAEMIA
     Dosage: 3 DF, UNK
     Route: 041
     Dates: start: 20090921, end: 20090923

REACTIONS (4)
  - HEPATIC FUNCTION ABNORMAL [None]
  - METABOLIC ACIDOSIS [None]
  - NAUSEA [None]
  - RENAL FAILURE ACUTE [None]
